FAERS Safety Report 20964934 (Version 1)
Quarter: 2022Q2

REPORT INFORMATION
  Report Type: Spontaneous
  Country: DE (occurrence: DE)
  Receive Date: 20220616
  Receipt Date: 20220616
  Transmission Date: 20220720
  Serious: Yes (Other)
  Sender: FDA-Public Use
  Company Number: DE-EMA-DD-20220524-5861859-122730

PATIENT
  Age: 70 Year
  Sex: Female
  Weight: 80 kg

DRUGS (14)
  1. EMPAGLIFLOZIN [Suspect]
     Active Substance: EMPAGLIFLOZIN
     Indication: Type 2 diabetes mellitus
     Dosage: 1 DOSAGE FORM
  2. EXEMESTANE [Suspect]
     Active Substance: EXEMESTANE
     Indication: Breast cancer
     Dosage: 1 DOSAGE FORM
     Dates: start: 2015
  3. NALOXONE HYDROCHLORIDE\OXYCODONE HYDROCHLORIDE [Suspect]
     Active Substance: NALOXONE HYDROCHLORIDE\OXYCODONE HYDROCHLORIDE
     Indication: Product used for unknown indication
     Dosage: 1 DOSAGE FORM
  4. METFORMIN [Suspect]
     Active Substance: METFORMIN HYDROCHLORIDE
     Indication: Type 2 diabetes mellitus
     Dosage: 0.5 DOSAGE FORM
  5. POLYETHYLENE GLYCOLS [Concomitant]
     Active Substance: POLYETHYLENE GLYCOLS
     Indication: Product used for unknown indication
     Dosage: 1 DOSAGE FORM
  6. LEVOTHYROXINE 125 ?g [Concomitant]
     Indication: Product used for unknown indication
     Dosage: 1 DOSAGE FORM
  7. IODIDE 100 mg [Concomitant]
     Indication: Product used for unknown indication
     Dosage: 1 DOSAGE FORM
  8. METOPROLOL [Concomitant]
     Active Substance: METOPROLOL
     Indication: Left ventricular failure
     Dosage: 1 DOSAGE FORM
  9. ENALAPRIL [Concomitant]
     Active Substance: ENALAPRIL
     Indication: Congestive cardiomyopathy
     Dosage: 1 DOSAGE FORM
  10. ENALAPRIL [Concomitant]
     Active Substance: ENALAPRIL
     Indication: Left ventricular failure
  11. ATORVASTATIN [Concomitant]
     Active Substance: ATORVASTATIN
     Indication: Product used for unknown indication
     Dosage: 0.5 DOSAGE FORM
  12. PREGABALIN [Concomitant]
     Active Substance: PREGABALIN
     Indication: Product used for unknown indication
     Dosage: 1 DOSAGE FORM
  13. XIPAMIDE 10 mg [Concomitant]
     Indication: Oedema
     Dosage: 2 DOSAGE FORM
  14. ALLOPURINOL [Concomitant]
     Active Substance: ALLOPURINOL
     Indication: Product used for unknown indication
     Dosage: 1 DOSAGE FORM

REACTIONS (11)
  - Arthralgia [Unknown]
  - Hypophagia [Unknown]
  - Gastrointestinal disorder [Unknown]
  - Inappropriate schedule of product administration [Unknown]
  - Hypoglycaemia [Unknown]
  - Nausea [Unknown]
  - Drug intolerance [Unknown]
  - Impaired quality of life [Unknown]
  - Back pain [Unknown]
  - Incorrect product formulation administered [Unknown]
  - Fall [Unknown]
